FAERS Safety Report 7007478-8 (Version None)
Quarter: 2010Q3

REPORT INFORMATION
  Report Type: 
  Country: None (occurrence: None)
  Receive Date: 20100914
  Receipt Date: 20100909
  Transmission Date: 20110219
  Serious: Yes (Life-Threatening, Hospitalization)
  Sender: FDA-Public Use
  Company Number: 2009-201115-NL

PATIENT
  Age: 78 Year
  Sex: Male
  Weight: 54.6 kg

DRUGS (7)
  1. ESLAX (ROCURONIUM BROMIDE /01245702/) [Suspect]
     Indication: NEUROMUSCULAR BLOCKING THERAPY
     Dosage: 36 MG; ONCE; INBO, 6 MG; ONCE; INBO, 8 DF; ; INDRP
     Dates: start: 20090629, end: 20090629
  2. FENTANYL CITRATE [Concomitant]
  3. PROPOFOL [Concomitant]
  4. ATROPINE SULFATE [Concomitant]
  5. VAGOSTIGMIN [Concomitant]
  6. MORPHINE HYDROCHLORIDE [Concomitant]
  7. ROPIVACAINE HYDROCHLORIDE [Concomitant]

REACTIONS (9)
  - ACUTE RESPIRATORY DISTRESS SYNDROME [None]
  - ENDOTRACHEAL INTUBATION COMPLICATION [None]
  - FAILURE TO ANASTOMOSE [None]
  - NEUROMUSCULAR BLOCK PROLONGED [None]
  - PERITONITIS [None]
  - PNEUMONIA ASPIRATION [None]
  - SEPTIC SHOCK [None]
  - SURGICAL PROCEDURE REPEATED [None]
  - VOMITING [None]
